FAERS Safety Report 5793439-3 (Version None)
Quarter: 2008Q2

REPORT INFORMATION
  Report Type: 
  Country: None (occurrence: None)
  Receive Date: 20080627
  Receipt Date: 20080618
  Transmission Date: 20081010
  Serious: Yes (Other)
  Sender: FDA-Public Use
  Company Number: US-JNJFOC-20080605140

PATIENT
  Sex: Female
  Weight: 54.43 kg

DRUGS (2)
  1. DURAGESIC-100 [Suspect]
     Indication: BACK PAIN
     Route: 062
  2. DIAZEPAM [Concomitant]
     Indication: ANXIETY
     Route: 048

REACTIONS (10)
  - BLOOD PRESSURE INCREASED [None]
  - BONE DISORDER [None]
  - CONVULSION [None]
  - DRUG ADMINISTERED AT INAPPROPRIATE SITE [None]
  - HEART RATE INCREASED [None]
  - HEAT STROKE [None]
  - PHARMACEUTICAL PRODUCT COMPLAINT [None]
  - VISION BLURRED [None]
  - WITHDRAWAL SYNDROME [None]
  - WRONG TECHNIQUE IN DRUG USAGE PROCESS [None]
